FAERS Safety Report 8257679-6 (Version None)
Quarter: 2012Q2

REPORT INFORMATION
  Report Type: 
  Country: None (occurrence: None)
  Receive Date: 20120403
  Receipt Date: 20120329
  Transmission Date: 20120825
  Serious: Yes (Hospitalization)
  Sender: FDA-Public Use
  Company Number: US-ABBOTT-12P-163-0920187-00

PATIENT
  Sex: Male
  Weight: 71.278 kg

DRUGS (3)
  1. HUMIRA [Suspect]
     Indication: CROHN'S DISEASE
     Route: 058
     Dates: start: 20101001
  2. DIPHENOXYLATE [Concomitant]
     Indication: ABDOMINAL PAIN
  3. UNKNOWN ANXIETY MEDICATION [Concomitant]
     Indication: ABDOMINAL PAIN

REACTIONS (3)
  - INFLAMMATION [None]
  - CROHN'S DISEASE [None]
  - ABDOMINAL PAIN [None]
